FAERS Safety Report 17244210 (Version 3)
Quarter: 2020Q1

REPORT INFORMATION
  Report Type: Spontaneous
  Country: US (occurrence: US)
  Receive Date: 20200107
  Receipt Date: 20200120
  Transmission Date: 20200409
  Serious: No
  Sender: FDA-Public Use
  Company Number: US-BIOGEN-2019BI00774755

PATIENT
  Age: 53 Year
  Sex: Female

DRUGS (1)
  1. SPINRAZA [Suspect]
     Active Substance: NUSINERSEN
     Indication: SPINAL MUSCULAR ATROPHY
     Route: 037
     Dates: start: 20180209

REACTIONS (8)
  - Cerebrospinal fluid leakage [Recovered/Resolved]
  - Balance disorder [Not Recovered/Not Resolved]
  - Post lumbar puncture syndrome [Recovered/Resolved]
  - Fluid retention [Recovered/Resolved]
  - Asthenia [Unknown]
  - Inappropriate schedule of product administration [Not Recovered/Not Resolved]
  - Bradykinesia [Not Recovered/Not Resolved]
  - Asthenia [Recovered/Resolved]

NARRATIVE: CASE EVENT DATE: 20190809
